FAERS Safety Report 6998948-7 (Version None)
Quarter: 2010Q3

REPORT INFORMATION
  Report Type: 
  Country: None (occurrence: None)
  Receive Date: 20100920
  Receipt Date: 20090720
  Transmission Date: 20110219
  Serious: Yes (Other)
  Sender: FDA-Public Use
  Company Number: US-ASTRAZENECA-2007UW05878

PATIENT
  Age: 30 Year
  Sex: Female
  Weight: 131.8 kg

DRUGS (11)
  1. SEROQUEL [Suspect]
     Route: 048
     Dates: start: 20060303
  2. SALSALATE [Concomitant]
     Dates: start: 20060319
  3. FLUOXETINE [Concomitant]
     Dates: start: 20060304
  4. METHOCARB [Concomitant]
     Dates: start: 20060302
  5. PRILOSEC [Concomitant]
     Route: 048
     Dates: start: 20061206
  6. TRAZODONE HYDROCHLORIDE [Concomitant]
     Route: 048
     Dates: start: 20061206
  7. AMITRIPTYLINE HYDROCHLORIDE [Concomitant]
     Dosage: 50 MG HALF TABLET EVERY NIGHT
     Route: 048
     Dates: start: 20061206
  8. HYDROCHLOROTHIAZIDE [Concomitant]
     Route: 048
     Dates: start: 20060608
  9. LIPITOR [Concomitant]
     Route: 048
     Dates: start: 20051114
  10. GABAPENTIN [Concomitant]
     Route: 048
     Dates: start: 20060614
  11. VISTARIL PAMOATE [Concomitant]
     Route: 048
     Dates: start: 20061213

REACTIONS (3)
  - KETOACIDOSIS [None]
  - PANCREATITIS [None]
  - TYPE 2 DIABETES MELLITUS [None]
